FAERS Safety Report 6933054-9 (Version None)
Quarter: 2010Q3

REPORT INFORMATION
  Report Type: 
  Country: None (occurrence: None)
  Receive Date: 20100818
  Receipt Date: 20100818
  Transmission Date: 20110219
  Serious: Yes (Hospitalization, Other)
  Sender: FDA-Public Use
  Company Number: None

PATIENT
  Age: 28 Year
  Sex: Male
  Weight: 64.9 kg

DRUGS (1)
  1. HYDROCODONE BITARTRATE + ACETAMINOPHEN [Suspect]
     Indication: PAIN IN JAW
     Dosage: ONCE ORAL
     Route: 048
     Dates: start: 20100306

REACTIONS (2)
  - SELF-MEDICATION [None]
  - SWOLLEN TONGUE [None]
